FAERS Safety Report 5430698-0 (Version None)
Quarter: 2007Q3

REPORT INFORMATION
  Report Type: 
  Country: None (occurrence: None)
  Receive Date: 20070830
  Receipt Date: 20070821
  Transmission Date: 20080115
  Serious: Yes (Life-Threatening)
  Sender: FDA-Public Use
  Company Number: PK-AVENTIS-200717729GDDC

PATIENT
  Age: 9 Year
  Sex: Female

DRUGS (1)
  1. FLAGYL [Suspect]
     Route: 042
     Dates: start: 20070820, end: 20070820

REACTIONS (3)
  - ANAPHYLACTIC SHOCK [None]
  - CHILLS [None]
  - DYSPNOEA [None]
